FAERS Safety Report 6251652-5 (Version None)
Quarter: 2009Q2

REPORT INFORMATION
  Report Type: 
  Country: None (occurrence: None)
  Receive Date: 20090630
  Receipt Date: 20090618
  Transmission Date: 20091009
  Serious: Yes (Hospitalization)
  Sender: FDA-Public Use
  Company Number: RU-PFIZER INC-2009164804

PATIENT
  Age: 13 Year

DRUGS (4)
  1. BLINDED *NO SUBJECT DRUG [Suspect]
     Dosage: NO DOSE GIVEN
  2. BLINDED *PLACEBO [Suspect]
     Dosage: NO DOSE GIVEN
  3. BLINDED ZIPRASIDONE HCL [Suspect]
     Dosage: NO DOSE GIVEN
  4. CLOZAPINE [Concomitant]
     Route: 048
     Dates: end: 20090121

REACTIONS (3)
  - AGITATION [None]
  - HOSTILITY [None]
  - INSOMNIA [None]
